FAERS Safety Report 12315764 (Version 2)
Quarter: 2016Q2

REPORT INFORMATION
  Report Type: Report from Study
  Country: AR (occurrence: AR)
  Receive Date: 20160428
  Receipt Date: 20160513
  Transmission Date: 20160815
  Serious: No
  Sender: FDA-Public Use
  Company Number: PHHY2016AR056699

PATIENT
  Sex: Female

DRUGS (1)
  1. TEGRETOL [Suspect]
     Active Substance: CARBAMAZEPINE
     Indication: FACIAL SPASM
     Dosage: 0.5 DF (400, UNITS NOT PROVIDED), BID (HALF IN THE MORNING AND HALF AT NIGHT) (APPROX. ONE YEAR AGO)
     Route: 065

REACTIONS (9)
  - Visual impairment [Recovering/Resolving]
  - Blepharospasm [Recovering/Resolving]
  - Crying [Unknown]
  - Memory impairment [Unknown]
  - Malaise [Recovering/Resolving]
  - Vision blurred [Unknown]
  - Anxiety [Unknown]
  - Blood pressure abnormal [Recovering/Resolving]
  - Drug intolerance [Unknown]
